FAERS Safety Report 15851398 (Version 3)
Quarter: 2019Q1

REPORT INFORMATION
  Report Type: Spontaneous
  Country: IT (occurrence: IT)
  Receive Date: 20190122
  Receipt Date: 20190307
  Transmission Date: 20190417
  Serious: Yes (Hospitalization)
  Sender: FDA-Public Use
  Company Number: IT-009507513-1901ITA004921

PATIENT
  Age: 72 Year
  Sex: Male

DRUGS (8)
  1. TRIATEC (ACETAMINOPHEN (+) CODEINE PHOSPHATE) [Concomitant]
     Dosage: 5 MILLIGRAM
     Route: 048
  2. METFORAL [Suspect]
     Active Substance: METFORMIN HYDROCHLORIDE
     Indication: TYPE 2 DIABETES MELLITUS
     Dosage: 500 MILLIGRAM, QD
     Route: 048
     Dates: start: 20120101, end: 20181220
  3. TOTALIP [Concomitant]
     Active Substance: ATORVASTATIN
     Dosage: 80 MILLIGRAM
     Route: 048
  4. DUOPLAVIN [Concomitant]
     Active Substance: ASPIRIN\CLOPIDOGREL
  5. LASIX [Concomitant]
     Active Substance: FUROSEMIDE
     Dosage: 25 MILLIGRAM
     Route: 048
  6. EFFICIB [Suspect]
     Active Substance: METFORMIN HYDROCHLORIDE\SITAGLIPTIN PHOSPHATE
     Dosage: 2000 MG DAILY
     Route: 048
  7. SEQUACOR [Concomitant]
     Active Substance: BISOPROLOL
     Dosage: 1.25 MG
     Route: 048
  8. TRANQUIRIT [Concomitant]
     Active Substance: DIAZEPAM
     Dosage: 25 DROPS (1/12 MILILITRE)
     Route: 048

REACTIONS (2)
  - Metabolic acidosis [Recovered/Resolved with Sequelae]
  - Acute kidney injury [Recovered/Resolved with Sequelae]

NARRATIVE: CASE EVENT DATE: 20181220
